FAERS Safety Report 11914467 (Version 1)
Quarter: 2016Q1

REPORT INFORMATION
  Report Type: Spontaneous
  Country: BR (occurrence: BR)
  Receive Date: 20160113
  Receipt Date: 20160113
  Transmission Date: 20160526
  Serious: Yes (Other)
  Sender: FDA-Public Use
  Company Number: BR-JNJFOC-20160107526

PATIENT
  Age: 64 Year
  Sex: Male
  Weight: 73 kg

DRUGS (4)
  1. TECNOMET [Concomitant]
     Active Substance: METHOTREXATE
     Route: 065
  2. REMICADE [Suspect]
     Active Substance: INFLIXIMAB
     Indication: ANKYLOSING SPONDYLITIS
     Route: 042
  3. ENDOFOLIN [Concomitant]
     Active Substance: FOLIC ACID
     Route: 065
  4. REMICADE [Suspect]
     Active Substance: INFLIXIMAB
     Indication: ANKYLOSING SPONDYLITIS
     Route: 042

REACTIONS (3)
  - Urinary tract infection [Recovered/Resolved]
  - Cholelithiasis [Unknown]
  - Weight fluctuation [Unknown]

NARRATIVE: CASE EVENT DATE: 201511
